FAERS Safety Report 15434882 (Version 2)
Quarter: 2018Q4

REPORT INFORMATION
  Report Type: Report from Study
  Country: DE (occurrence: DE)
  Receive Date: 20180927
  Receipt Date: 20181026
  Transmission Date: 20190204
  Serious: Yes (Hospitalization)
  Sender: FDA-Public Use
  Company Number: DE-PFIZER INC-2018385936

PATIENT
  Age: 72 Year
  Sex: Female

DRUGS (3)
  1. CIMZIA [Suspect]
     Active Substance: CERTOLIZUMAB PEGOL
     Dosage: 200 MG, CYCLIC, EVERY 2 WEEKS
     Dates: end: 201804
  2. NO SUBJECT DRUG [Suspect]
     Active Substance: UNSPECIFIED INGREDIENT
     Dosage: NO DOSE GIVEN
  3. XELJANZ [Suspect]
     Active Substance: TOFACITINIB CITRATE
     Indication: RHEUMATOID ARTHRITIS
     Dosage: 2 MG, 5 TIMES A DAY
     Dates: start: 20180423

REACTIONS (4)
  - Bronchial hyperreactivity [Unknown]
  - Cough [Unknown]
  - Bronchiectasis [Unknown]
  - Bronchiolitis [Unknown]

NARRATIVE: CASE EVENT DATE: 2017
